FAERS Safety Report 15139184 (Version 10)
Quarter: 2022Q2

REPORT INFORMATION
  Report Type: Spontaneous
  Country: US (occurrence: US)
  Receive Date: 20180713
  Receipt Date: 20220603
  Transmission Date: 20220721
  Serious: No
  Sender: FDA-Public Use
  Company Number: US-PFIZER INC-2015235399

PATIENT
  Age: 58 Year
  Sex: Female

DRUGS (3)
  1. XELJANZ [Suspect]
     Active Substance: TOFACITINIB CITRATE
     Indication: Rheumatoid arthritis
     Dosage: 5 MG
  2. XELJANZ [Suspect]
     Active Substance: TOFACITINIB CITRATE
     Dosage: 5 MG, DAILY (1 TABLET)
     Route: 048
  3. XELJANZ [Suspect]
     Active Substance: TOFACITINIB CITRATE
     Dosage: 5 MG, 2X/DAY
     Dates: start: 201802

REACTIONS (11)
  - Condition aggravated [Unknown]
  - Back pain [Not Recovered/Not Resolved]
  - Pain [Unknown]
  - Musculoskeletal stiffness [Unknown]
  - Muscle spasms [Unknown]
  - Sensitivity to weather change [Unknown]
  - Intentional product misuse [Unknown]
  - Feeling abnormal [Unknown]
  - Immune system disorder [Unknown]
  - Cardiac valve disease [Unknown]
  - COVID-19 [Unknown]
